FAERS Safety Report 10653788 (Version 1)
Quarter: 2014Q4

REPORT INFORMATION
  Report Type: Spontaneous
  Country: US (occurrence: None)
  Receive Date: 20141212
  Receipt Date: 20141212
  Transmission Date: 20150529
  Serious: Yes (Death)
  Sender: FDA-Public Use
  Company Number: US-H14001-14-01746

PATIENT
  Age: 24 Year
  Sex: Male

DRUGS (7)
  1. HEMOPURE [Suspect]
     Active Substance: HEMOGLOBIN GLUTAMER-250 (BOVINE)
     Indication: LACTIC ACIDOSIS
     Route: 042
  2. RITUXIMAB [Suspect]
     Active Substance: RITUXIMAB
  3. STEROIDS (CORTICOSTEROIDS) (UNKNOWN) [Suspect]
     Active Substance: UNSPECIFIED INGREDIENT
  4. HEMOPURE [Suspect]
     Active Substance: HEMOGLOBIN GLUTAMER-250 (BOVINE)
     Indication: HYPOXIA
     Route: 042
  5. CYCLOPHOSPHAMIDE. [Suspect]
     Active Substance: CYCLOPHOSPHAMIDE
  6. AMOXICILLIN (AMOXICILLIN) (UNKNOWN) (AMOXICILLIN) [Suspect]
     Active Substance: AMOXICILLIN
     Indication: URINARY TRACT INFECTION
  7. ECULIZUMAB [Suspect]
     Active Substance: ECULIZUMAB

REACTIONS (11)
  - Autoimmune haemolytic anaemia [None]
  - Acute myocardial infarction [None]
  - Methaemoglobinaemia [None]
  - Haematuria [None]
  - Haematemesis [None]
  - Multi-organ disorder [None]
  - Brain herniation [None]
  - Abdominal pain [None]
  - Arrhythmia [None]
  - Chest pain [None]
  - Ischaemia [None]
